FAERS Safety Report 9988028 (Version 1)
Quarter: 2014Q1

REPORT INFORMATION
  Report Type: Spontaneous
  Country: IT (occurrence: IT)
  Receive Date: 20140307
  Receipt Date: 20140307
  Transmission Date: 20141002
  Serious: Yes (Other)
  Sender: FDA-Public Use
  Company Number: IT-ASTRAZENECA-2014SE15129

PATIENT
  Age: 312 Month
  Sex: Female

DRUGS (3)
  1. NEXIUM [Suspect]
     Indication: OESOPHAGITIS
     Route: 048
     Dates: start: 200102, end: 2006
  2. NEXIUM [Suspect]
     Indication: OESOPHAGITIS
     Route: 048
     Dates: start: 20140301
  3. ANTRA [Suspect]
     Route: 048
     Dates: start: 2006, end: 20140228

REACTIONS (3)
  - Obstructive airways disorder [Recovering/Resolving]
  - Haematoma [Recovering/Resolving]
  - Alopecia [Recovering/Resolving]
